FAERS Safety Report 14034144 (Version 1)
Quarter: 2017Q4

REPORT INFORMATION
  Report Type: Spontaneous
  Country: US (occurrence: US)
  Receive Date: 20171003
  Receipt Date: 20171003
  Transmission Date: 20180321
  Serious: Yes (Hospitalization, Other)
  Sender: FDA-Public Use
  Company Number: US-009507513-0502USA02284

PATIENT
  Sex: Female

DRUGS (6)
  1. FOSAMAX [Suspect]
     Active Substance: ALENDRONATE SODIUM
     Indication: OSTEOPOROSIS
     Dosage: 70 MG, QW
     Route: 048
     Dates: start: 20050210
  2. ZOCOR [Concomitant]
     Active Substance: SIMVASTATIN
     Dosage: UNK
     Route: 048
     Dates: start: 200505, end: 200507
  3. VITAMINS (UNSPECIFIED) [Concomitant]
     Active Substance: VITAMINS
  4. RANITIDINE. [Concomitant]
     Active Substance: RANITIDINE
  5. THYROID [Concomitant]
     Active Substance: LEVOTHYROXINE\LIOTHYRONINE
  6. CALCIUM (UNSPECIFIED) [Concomitant]
     Active Substance: CALCIUM

REACTIONS (9)
  - Toothache [Not Recovered/Not Resolved]
  - Renal failure [Not Recovered/Not Resolved]
  - Gastric disorder [Recovering/Resolving]
  - Tooth abscess [Unknown]
  - Abscess jaw [Not Recovered/Not Resolved]
  - Toothache [Not Recovered/Not Resolved]
  - Oesophageal pain [Recovering/Resolving]
  - Drug administration error [Unknown]
  - Oropharyngeal pain [Recovered/Resolved]

NARRATIVE: CASE EVENT DATE: 2005
